FAERS Safety Report 7119721-5 (Version None)
Quarter: 2010Q4

REPORT INFORMATION
  Report Type: 
  Country: None (occurrence: None)
  Receive Date: 20101123
  Receipt Date: 20101116
  Transmission Date: 20110411
  Serious: Yes (Hospitalization, Other)
  Sender: FDA-Public Use
  Company Number: JP-CEPHALON-2010006080

PATIENT
  Sex: Female

DRUGS (12)
  1. TREANDA [Suspect]
     Indication: DIFFUSE LARGE B-CELL LYMPHOMA REFRACTORY
     Route: 042
     Dates: start: 20100914, end: 20101027
  2. RITUXIMAB [Suspect]
     Indication: DIFFUSE LARGE B-CELL LYMPHOMA REFRACTORY
     Route: 041
     Dates: start: 20100913, end: 20101025
  3. FAROPENEM [Concomitant]
     Dates: start: 20101109
  4. BIFIDOBACTERIUM BIFIDUM [Concomitant]
  5. SODIUM GUALENATE [Concomitant]
     Dates: start: 20101108
  6. SULFAMETHOXAZOLE AND TRIMETHOPRIM [Concomitant]
     Dates: start: 20100914
  7. ACYCLOVIR [Concomitant]
     Dates: start: 20100914
  8. ZOLPIDEM [Concomitant]
  9. RABEPRAZOLE SODIUM [Concomitant]
     Dates: start: 20101004
  10. MOSAPRIDE CITRATE [Concomitant]
     Dates: start: 20101109
  11. FILGRASTIM [Concomitant]
     Dates: start: 20101108, end: 20101109
  12. AZULENE [Concomitant]
     Dates: start: 20101104

REACTIONS (13)
  - ALANINE AMINOTRANSFERASE INCREASED [None]
  - ASPARTATE AMINOTRANSFERASE INCREASED [None]
  - BLOOD ALKALINE PHOSPHATASE INCREASED [None]
  - BLOOD LACTATE DEHYDROGENASE DECREASED [None]
  - CYTOMEGALOVIRUS INFECTION [None]
  - DECREASED APPETITE [None]
  - DIARRHOEA [None]
  - HAEMOGLOBIN DECREASED [None]
  - NEUTROPHIL COUNT DECREASED [None]
  - PLATELET COUNT DECREASED [None]
  - PYREXIA [None]
  - STOMATITIS [None]
  - WHITE BLOOD CELL COUNT DECREASED [None]
